FAERS Safety Report 10233542 (Version 1)
Quarter: 2014Q1

REPORT INFORMATION
  Report Type: Spontaneous
  Country: US (occurrence: None)
  Receive Date: 20140306
  Receipt Date: 20140306
  Transmission Date: 20141002
  Serious: Yes (Hospitalization, Other)
  Sender: FDA-Public Use
  Company Number: 163-21880-13052560

PATIENT
  Age: 72 Year
  Sex: Female
  Weight: 61 kg

DRUGS (2)
  1. REVLIMID (LENALIDOMIDE) (25 MILLIGRAM, CAPSULES) [Suspect]
     Indication: PLASMA CELL MYELOMA
     Route: 048
     Dates: start: 200906
  2. TRANSFUSION (BLOOD AND RELATED PRODUCTS) (UNKNOWN) [Concomitant]

REACTIONS (5)
  - Platelet count decreased [None]
  - Pain [None]
  - Asthenia [None]
  - Dizziness [None]
  - Fatigue [None]
